FAERS Safety Report 6916763-7 (Version None)
Quarter: 2010Q3

REPORT INFORMATION
  Report Type: 
  Country: None (occurrence: None)
  Receive Date: 20100810
  Receipt Date: 20100729
  Transmission Date: 20110219
  Serious: Yes (Other)
  Sender: FDA-Public Use
  Company Number: JP-PFIZER INC-2010095019

PATIENT
  Age: 74 Year
  Sex: Female

DRUGS (9)
  1. LYRICA [Suspect]
     Indication: POST HERPETIC NEURALGIA
     Dosage: 75 MG, 2X/DAY
     Route: 048
     Dates: start: 20100712, end: 20100722
  2. MYONAL [Concomitant]
     Dosage: UNK
     Route: 048
  3. GASTER [Concomitant]
     Dosage: UNK
     Route: 048
  4. MAALOX [Concomitant]
     Dosage: UNK
     Route: 048
  5. MARZULENE [Concomitant]
     Dosage: UNK
     Route: 048
  6. LIPIDIL [Concomitant]
     Dosage: UNK
     Route: 048
  7. MYSLEE [Concomitant]
     Dosage: UNK
     Route: 048
  8. ALPRAZOLAM [Concomitant]
     Dosage: UNK
     Route: 048
  9. SALICYLAMIDE [Concomitant]
     Dosage: UNK
     Dates: start: 20100712

REACTIONS (2)
  - EYELID OEDEMA [None]
  - FACE OEDEMA [None]
